FAERS Safety Report 15069627 (Version 1)
Quarter: 2018Q2

REPORT INFORMATION
  Report Type: Spontaneous
  Country: US (occurrence: US)
  Receive Date: 20180626
  Receipt Date: 20180626
  Transmission Date: 20180711
  Serious: No
  Sender: FDA-Public Use
  Company Number: US-AMGEN-USASP2012004266

PATIENT
  Sex: Female

DRUGS (3)
  1. AVASTIN                            /00848101/ [Concomitant]
     Active Substance: SIMVASTATIN
  2. NEULASTA [Suspect]
     Active Substance: PEGFILGRASTIM
     Indication: CHEMOTHERAPY
     Dosage: 6 MG, UNK
  3. GEMZAR [Concomitant]
     Active Substance: GEMCITABINE HYDROCHLORIDE

REACTIONS (3)
  - Night sweats [Unknown]
  - Pyrexia [Unknown]
  - Sinusitis [Unknown]
